FAERS Safety Report 8614239-2 (Version None)
Quarter: 2012Q3

REPORT INFORMATION
  Report Type: 
  Country: None (occurrence: None)
  Receive Date: 20120823
  Receipt Date: 20120702
  Transmission Date: 20120928
  Serious: No
  Sender: FDA-Public Use
  Company Number: US-009507513-1208USA007945

PATIENT

DRUGS (6)
  1. VITAMINS (UNSPECIFIED) [Concomitant]
     Route: 048
  2. PEG-INTRON [Suspect]
     Dosage: 150 MICROGRAM/0.5 ML, QW
     Route: 058
  3. CYANOCOBALAMIN [Concomitant]
     Dosage: 2500 MICROGRAM, UNK
     Route: 058
  4. TYLENOL [Concomitant]
     Dosage: 650 MG, UNK
     Route: 048
  5. TELAPREVIR [Concomitant]
     Dosage: 375 MG, UNK
     Route: 048
  6. REBETOL [Suspect]
     Dosage: 200 MG, UNK
     Route: 048

REACTIONS (5)
  - ANAEMIA [None]
  - PRURITUS [None]
  - DRY SKIN [None]
  - CHEST PAIN [None]
  - RASH [None]
